FAERS Safety Report 6331817-4 (Version None)
Quarter: 2009Q3

REPORT INFORMATION
  Report Type: 
  Country: None (occurrence: None)
  Receive Date: 20090826
  Receipt Date: 20090813
  Transmission Date: 20100115
  Serious: Yes (Hospitalization)
  Sender: FDA-Public Use
  Company Number: 2009AP003298

PATIENT
  Age: 19 Year
  Sex: Female

DRUGS (6)
  1. SERTRALINE HYDROCHLORIDE [Suspect]
     Dosage: 500 MG; PO, 50 MG; PO
     Route: 048
     Dates: start: 20090101
  2. SERTRALINE HYDROCHLORIDE [Suspect]
     Dosage: 500 MG; PO, 50 MG; PO
     Route: 048
     Dates: start: 20090101
  3. SERTRALINE HYDROCHLORIDE [Suspect]
     Dosage: 500 MG; PO, 50 MG; PO
     Route: 048
     Dates: start: 20090501
  4. TRAZODONE HCL [Suspect]
     Indication: DEPRESSION
     Dosage: 2000 MG; PO, 50 MG; PO, 2000 MG; CAP; PO
     Route: 048
     Dates: start: 20090101, end: 20090401
  5. TRAZODONE HCL [Suspect]
     Indication: DEPRESSION
     Dosage: 2000 MG; PO, 50 MG; PO, 2000 MG; CAP; PO
     Route: 048
     Dates: start: 20090101, end: 20090501
  6. TRAZODONE HCL [Suspect]
     Indication: DEPRESSION
     Dosage: 2000 MG; PO, 50 MG; PO, 2000 MG; CAP; PO
     Route: 048
     Dates: start: 20090501, end: 20090501

REACTIONS (5)
  - FATIGUE [None]
  - HYPOTENSION [None]
  - LETHARGY [None]
  - MULTIPLE DRUG OVERDOSE [None]
  - SOMNOLENCE [None]
